FAERS Safety Report 7408097-1 (Version None)
Quarter: 2011Q2

REPORT INFORMATION
  Report Type: 
  Country: None (occurrence: None)
  Receive Date: 20110412
  Receipt Date: 20110331
  Transmission Date: 20111010
  Serious: Yes (Hospitalization)
  Sender: FDA-Public Use
  Company Number: US-MYLANLABS-2011S1006704

PATIENT
  Age: 60 Year
  Sex: Female

DRUGS (2)
  1. DOXEPIN HYDROCHLORIDE [Suspect]
     Indication: INSOMNIA
     Route: 048
     Dates: start: 20110302, end: 20110303
  2. SYNTHROID [Concomitant]

REACTIONS (4)
  - SEDATION [None]
  - IMPAIRED GASTRIC EMPTYING [None]
  - INTESTINAL OBSTRUCTION [None]
  - GASTROINTESTINAL MOTILITY DISORDER [None]
